FAERS Safety Report 4680015-9 (Version None)
Quarter: 2005Q2

REPORT INFORMATION
  Report Type: 
  Country: None (occurrence: None)
  Receive Date: 20050602
  Receipt Date: 20041203
  Transmission Date: 20051028
  Serious: Yes (Hospitalization)
  Sender: FDA-Public Use
  Company Number: GB-GLAXOSMITHKLINE-B0359430A

PATIENT
  Age: 15 Year
  Sex: Male

DRUGS (1)
  1. PAROXETINE HCL [Suspect]
     Indication: DEPRESSED MOOD
     Dosage: 20MG PER DAY
     Route: 065
     Dates: start: 20020513, end: 20020601

REACTIONS (5)
  - AGGRESSION [None]
  - ANGER [None]
  - ILL-DEFINED DISORDER [None]
  - OVERDOSE [None]
  - SUICIDE ATTEMPT [None]
